FAERS Safety Report 16073449 (Version 2)
Quarter: 2019Q1

REPORT INFORMATION
  Report Type: Spontaneous
  Country: ES (occurrence: ES)
  Receive Date: 20190314
  Receipt Date: 20190320
  Transmission Date: 20190418
  Serious: Yes (Hospitalization)
  Sender: FDA-Public Use
  Company Number: ES-MYLANLABS-2019M1023331

PATIENT
  Age: 59 Year
  Sex: Female
  Weight: 54 kg

DRUGS (15)
  1. PALBOCICLIB [Suspect]
     Active Substance: PALBOCICLIB
     Indication: BREAST CANCER METASTATIC
     Dosage: UNK
  2. EFFEXOR [Concomitant]
     Active Substance: VENLAFAXINE HYDROCHLORIDE
     Dosage: 75 MG, 1X/DAY
     Route: 048
     Dates: start: 2016
  3. CEFAZOLINE                         /00288501/ [Concomitant]
     Active Substance: CEFAZOLIN
     Dosage: 2 GRAM, QD
     Route: 042
     Dates: start: 20161212
  4. LEXOMIL [Concomitant]
     Active Substance: BROMAZEPAM
     Dosage: 6 MILLIGRAM, BID
     Route: 048
     Dates: start: 2010
  5. LETROZOLE. [Suspect]
     Active Substance: LETROZOLE
     Indication: BREAST CANCER METASTATIC
     Dosage: UNK
  6. MOGADON [Concomitant]
     Active Substance: NITRAZEPAM
     Dosage: 5 MG, 1X/DAY
     Route: 048
     Dates: start: 2010
  7. SOLU-MEDROL [Concomitant]
     Active Substance: METHYLPREDNISOLONE SODIUM SUCCINATE
     Dosage: 120 MG, 1X/DAY
     Route: 048
     Dates: start: 20161212
  8. PROZAC [Concomitant]
     Active Substance: FLUOXETINE HYDROCHLORIDE
     Dosage: 20 MG, 1X/DAY
     Route: 048
     Dates: start: 2010
  9. ACTISKENAN [Concomitant]
     Active Substance: MORPHINE SULFATE
     Indication: PROPHYLAXIS
     Dosage: 10 MG, AS NEEDED (ON DEMAND)
     Route: 048
     Dates: start: 20161114
  10. THERALENE [Concomitant]
     Active Substance: TRIMEPRAZINE
     Dosage: 80 GTT, 1X/DAY
     Route: 048
     Dates: start: 2010
  11. TERCIAN                            /00759301/ [Concomitant]
     Active Substance: CYAMEMAZINE
     Dosage: 30 GTT, 1X/DAY
     Route: 048
     Dates: start: 2010
  12. KEPPRA [Concomitant]
     Active Substance: LEVETIRACETAM
     Dosage: 500 MILLIGRAM, BID
     Route: 048
     Dates: start: 20161017
  13. NEO-SYNEPHRINE [Concomitant]
     Active Substance: PHENYLEPHRINE HYDROCHLORIDE
     Dosage: 50 UG/ML, 1X/DAY
     Route: 042
     Dates: start: 20161212
  14. VENLAFAXINE [Suspect]
     Active Substance: VENLAFAXINE HYDROCHLORIDE
     Indication: BREAST CANCER METASTATIC
     Dosage: UNK
  15. SKENAN [Concomitant]
     Active Substance: MORPHINE SULFATE
     Indication: PROPHYLAXIS
     Dosage: 80 MG, 2X/DAY
     Route: 048
     Dates: start: 20161103

REACTIONS (1)
  - Hyponatraemia [Recovered/Resolved]

NARRATIVE: CASE EVENT DATE: 20180720
